FAERS Safety Report 9237502 (Version 3)
Quarter: 2013Q3

REPORT INFORMATION
  Report Type: Spontaneous
  Country: BR (occurrence: BR)
  Receive Date: 20130417
  Receipt Date: 20130703
  Transmission Date: 20140515
  Serious: Yes (Other)
  Sender: FDA-Public Use
  Company Number: BR-AMGEN-BRACT2011048879

PATIENT
  Age: 60 Year
  Sex: Male
  Weight: 83 kg

DRUGS (8)
  1. ENBREL [Suspect]
     Indication: PSORIASIS
     Dosage: 50 MG, WEEKLY
     Route: 058
     Dates: start: 200909
  2. ENBREL [Suspect]
     Dosage: 50 MG, WEEKLY
     Route: 058
     Dates: start: 200909
  3. PSORALEN [Suspect]
     Indication: PSORIASIS
     Dosage: UNK, WEEKLY
     Dates: start: 201112
  4. ATENOLOL [Concomitant]
     Indication: HYPERTENSION
     Dosage: UNK
     Dates: start: 2003
  5. CELEBRA [Concomitant]
     Dosage: UNK
  6. DEPAKOTE [Concomitant]
     Dosage: UNK
  7. DORFLEX                            /01545201/ [Concomitant]
     Dosage: UNK
  8. ENALAPRIL [Concomitant]
     Indication: HYPERTENSION
     Dosage: UNK
     Dates: start: 2003

REACTIONS (9)
  - Pruritus [Not Recovered/Not Resolved]
  - Pain [Not Recovered/Not Resolved]
  - Haemorrhage [Unknown]
  - Cardiac disorder [Unknown]
  - Psoriasis [Recovered/Resolved]
  - Drug ineffective [Not Recovered/Not Resolved]
  - Injection site reaction [Not Recovered/Not Resolved]
  - Injection site pain [Not Recovered/Not Resolved]
  - Fall [Unknown]
